FAERS Safety Report 4452952-1 (Version None)
Quarter: 2004Q3

REPORT INFORMATION
  Report Type: 
  Country: None (occurrence: None)
  Receive Date: 20040916
  Receipt Date: 20040901
  Transmission Date: 20050211
  Serious: Yes (Hospitalization)
  Sender: FDA-Public Use
  Company Number: 2004-BP-07555RO

PATIENT
  Age: 48 Year
  Sex: Female

DRUGS (2)
  1. DEXAMETHASONE [Suspect]
     Indication: MULTIPLE MYELOMA
     Dosage: 40 MG/DAY X 4 DAYS PER CYCLE (NR), PO
     Route: 048
     Dates: start: 20021102, end: 20030820
  2. GENASENSE [Suspect]
     Indication: MULTIPLE MYELOMA
     Dosage: 420 MG/DAY X 8 DAYS PER CYCLE
     Dates: start: 20021029, end: 20030908

REACTIONS (1)
  - ATAXIA [None]
